FAERS Safety Report 8896340 (Version 1)
Quarter: 2012Q4

REPORT INFORMATION
  Report Type: Spontaneous
  Country: US (occurrence: None)
  Receive Date: 20121107
  Receipt Date: 20121107
  Transmission Date: 20130627
  Serious: Yes (Other)
  Sender: FDA-Public Use
  Company Number: None

PATIENT
  Sex: Female
  Weight: 74.84 kg

DRUGS (2)
  1. SYNTHROID [Suspect]
     Indication: HYPOTHYROIDISM
     Dosage: 1 tablet daily mouth 
changed to Levothyrox x 1yr @ 75 mcg
     Dates: start: 20120926, end: 20121001
  2. ATENOLOL [Suspect]
     Dosage: 1 tablet daily mouth
     Dates: start: 20121001, end: 20121016

REACTIONS (15)
  - Blood pressure fluctuation [None]
  - Heart rate increased [None]
  - Dyspnoea [None]
  - Chest discomfort [None]
  - Paraesthesia [None]
  - Chills [None]
  - Fatigue [None]
  - Peripheral coldness [None]
  - Dry eye [None]
  - Dry mouth [None]
  - Syncope [None]
  - Pulse pressure decreased [None]
  - Blood potassium increased [None]
  - Blood sodium increased [None]
  - Medical device complication [None]
